FAERS Safety Report 12136680 (Version 2)
Quarter: 2016Q1

REPORT INFORMATION
  Report Type: Spontaneous
  Country: JP (occurrence: JP)
  Receive Date: 20160302
  Receipt Date: 20160316
  Transmission Date: 20160526
  Serious: Yes (Life-Threatening, Hospitalization)
  Sender: FDA-Public Use
  Company Number: JP-JNJFOC-20160225321

PATIENT
  Age: 78 Year
  Sex: Male

DRUGS (6)
  1. GONAX [Concomitant]
     Active Substance: DEGARELIX
     Route: 042
  2. PREDONINE [Suspect]
     Active Substance: PREDNISOLONE\PREDNISOLONE ACETATE\PREDNISOLONE SODIUM SUCCINATE
     Indication: HORMONE-REFRACTORY PROSTATE CANCER
     Route: 048
     Dates: start: 20151214, end: 20160211
  3. RANMARK [Concomitant]
     Active Substance: DENOSUMAB
     Route: 042
  4. ZYTIGA [Suspect]
     Active Substance: ABIRATERONE ACETATE
     Indication: HORMONE-REFRACTORY PROSTATE CANCER
     Route: 048
     Dates: start: 20151214, end: 20160211
  5. RANMARK [Concomitant]
     Active Substance: DENOSUMAB
     Route: 042
  6. GONAX [Concomitant]
     Active Substance: DEGARELIX
     Route: 042

REACTIONS (2)
  - Pneumocystis jirovecii pneumonia [Recovering/Resolving]
  - C-reactive protein increased [Recovering/Resolving]

NARRATIVE: CASE EVENT DATE: 20160211
